FAERS Safety Report 9655569 (Version 1)
Quarter: 2013Q4

REPORT INFORMATION
  Report Type: Spontaneous
  Country: US (occurrence: US)
  Receive Date: 20131029
  Receipt Date: 20131029
  Transmission Date: 20140711
  Serious: No
  Sender: FDA-Public Use
  Company Number: US-009507513-1310USA011606

PATIENT
  Sex: Female

DRUGS (1)
  1. FOLLISTIM AQ [Suspect]
     Indication: INFERTILITY
     Dosage: FOLLISTIM PEN

REACTIONS (2)
  - Dermatitis allergic [Unknown]
  - Rash [Unknown]
